FAERS Safety Report 20016509 (Version 1)
Quarter: 2021Q4

REPORT INFORMATION
  Report Type: Spontaneous
  Country: US (occurrence: None)
  Receive Date: 20211104
  Receipt Date: 20211104
  Transmission Date: 20220303
  Serious: Yes (Other)
  Sender: FDA-Public Use
  Company Number: None

PATIENT
  Age: 80 Year
  Sex: Male
  Weight: 99.7 kg

DRUGS (1)
  1. BARICITINIB [Suspect]
     Active Substance: BARICITINIB
     Indication: COVID-19 treatment
     Dosage: FREQUENCY : DAILY;?
     Route: 048
     Dates: start: 20211023, end: 20211028

REACTIONS (3)
  - Respiratory failure [None]
  - Sputum culture positive [None]
  - Staphylococcus test positive [None]

NARRATIVE: CASE EVENT DATE: 20211030
